FAERS Safety Report 5214973-0 (Version None)
Quarter: 2007Q1

REPORT INFORMATION
  Report Type: 
  Country: None (occurrence: None)
  Receive Date: 20070122
  Receipt Date: 20070110
  Transmission Date: 20070707
  Serious: Yes (Hospitalization, Disabling, Other)
  Sender: FDA-Public Use
  Company Number: IE-PFIZER INC-2003012210

PATIENT
  Age: 74 Year
  Sex: Female
  Weight: 52.5 kg

DRUGS (6)
  1. NEURONTIN [Suspect]
     Indication: NEURALGIA
     Route: 048
     Dates: start: 20020401, end: 20020621
  2. CALCICHEW [Concomitant]
     Route: 048
  3. DELTACORTRIL [Concomitant]
     Route: 048
  4. ISOPTIN [Concomitant]
     Route: 048
  5. ASPIRIN [Concomitant]
     Route: 048
  6. HALCION [Concomitant]
     Route: 048

REACTIONS (5)
  - DEAFNESS [None]
  - DEAFNESS NEUROSENSORY [None]
  - EAR DISCOMFORT [None]
  - TREMOR [None]
  - VAGINAL HAEMORRHAGE [None]
